FAERS Safety Report 5846172-3 (Version None)
Quarter: 2008Q3

REPORT INFORMATION
  Report Type: 
  Country: None (occurrence: None)
  Receive Date: 20080813
  Receipt Date: 20080804
  Transmission Date: 20090109
  Serious: Yes (Disabling, Other)
  Sender: FDA-Public Use
  Company Number: 2008AL009195

PATIENT
  Sex: Female

DRUGS (1)
  1. DIGOXIN [Suspect]
     Dates: start: 20070101, end: 20070501

REACTIONS (16)
  - ARM AMPUTATION [None]
  - ARRHYTHMIA [None]
  - ARTHROPATHY [None]
  - ASTHENIA [None]
  - ATRIOVENTRICULAR BLOCK [None]
  - AV DISSOCIATION [None]
  - BRADYCARDIA [None]
  - DIZZINESS [None]
  - FALL [None]
  - HEART RATE DECREASED [None]
  - HIP FRACTURE [None]
  - LOWER LIMB FRACTURE [None]
  - TACHYARRHYTHMIA [None]
  - TACHYCARDIA [None]
  - THERAPEUTIC AGENT TOXICITY [None]
  - UPPER LIMB FRACTURE [None]
